FAERS Safety Report 20697244 (Version 1)
Quarter: 2022Q2

REPORT INFORMATION
  Report Type: Spontaneous
  Country: US (occurrence: US)
  Receive Date: 20220411
  Receipt Date: 20220411
  Transmission Date: 20220721
  Serious: No
  Sender: FDA-Public Use
  Company Number: US-PFIZER INC-2021606092

PATIENT
  Age: 65 Year
  Sex: Male
  Weight: 86.183 kg

DRUGS (1)
  1. LIDOCAINE HYDROCHLORIDE [Suspect]
     Active Substance: LIDOCAINE HYDROCHLORIDE
     Indication: Tendonitis
     Dosage: 2 ML 1%

REACTIONS (1)
  - Off label use [Recovered/Resolved]
